FAERS Safety Report 5945305-8 (Version None)
Quarter: 2008Q4

REPORT INFORMATION
  Report Type: 
  Country: None (occurrence: None)
  Receive Date: 20081030
  Receipt Date: 20081016
  Transmission Date: 20090506
  Serious: Yes (Life-Threatening, Other)
  Sender: FDA-Public Use
  Company Number: THYM-1000772

PATIENT
  Age: 9 Year
  Sex: Male
  Weight: 48 kg

DRUGS (4)
  1. THYMOGLOBULIN [Suspect]
     Indication: BONE MARROW CONDITIONING REGIMEN
     Dosage: 2.08 MG/KG, INTRAVENOUS, 25 MG, INTRAVENOUS, 50 MG, INTRAVENOUS
     Route: 042
     Dates: start: 20080915, end: 20080915
  2. STERIOD (STEROID) [Concomitant]
  3. BUSULFAN (BUSULFAN) [Concomitant]
  4. SOLU-CORTEF [Concomitant]

REACTIONS (5)
  - BACTERIAL INFECTION [None]
  - CONVULSION [None]
  - HYPOTENSION [None]
  - PYREXIA [None]
  - SEPTIC SHOCK [None]
